FAERS Safety Report 7225662-5 (Version None)
Quarter: 2011Q1

REPORT INFORMATION
  Report Type: 
  Country: None (occurrence: None)
  Receive Date: 20110113
  Receipt Date: 20110104
  Transmission Date: 20110831
  Serious: Yes (Disabling)
  Sender: FDA-Public Use
  Company Number: US-ASTRAZENECA-2011SE00575

PATIENT
  Age: 58 Year
  Sex: Female

DRUGS (16)
  1. NEXIUM [Suspect]
     Route: 048
  2. STOP PAIN LIQUID ANESTHETIC ROLL ON [Concomitant]
  3. ATIVAN [Concomitant]
  4. FOLBEE [Concomitant]
  5. ZOLOFT [Concomitant]
  6. COZAAR [Concomitant]
  7. VICODIN [Concomitant]
  8. REGLAN [Concomitant]
     Dosage: 5 ML THREE PER DAY
  9. SEROQUEL [Suspect]
     Route: 048
  10. NIASPAN [Concomitant]
  11. MINIPRESS [Concomitant]
  12. TOPROL-XL [Suspect]
     Route: 048
  13. LYRICA [Concomitant]
  14. WELLBUTRIN [Concomitant]
  15. GENTEL LUBRICATING EYE GEL [Concomitant]
     Dosage: FOUR TUBES PER MONTH
  16. SYSTANE LUBRICATING EYE DROPS [Concomitant]
     Dosage: FOUR BOTTLES PER MONTH

REACTIONS (13)
  - DIVERTICULUM [None]
  - DEPRESSION [None]
  - RADICULOPATHY [None]
  - SCIATICA [None]
  - POST-TRAUMATIC STRESS DISORDER [None]
  - INTERVERTEBRAL DISC DEGENERATION [None]
  - LEFT VENTRICULAR HYPERTROPHY [None]
  - HYPERTENSION [None]
  - HIATUS HERNIA [None]
  - BLINDNESS [None]
  - BLOOD DISORDER [None]
  - DRUG DOSE OMISSION [None]
  - FIBROMYALGIA [None]
